FAERS Safety Report 7064733-3 (Version None)
Quarter: 2010Q4

REPORT INFORMATION
  Report Type: 
  Country: None (occurrence: None)
  Receive Date: 20101027
  Receipt Date: 19950908
  Transmission Date: 20110411
  Serious: Yes (Death, Hospitalization)
  Sender: FDA-Public Use
  Company Number: FR-ROCHE-50985

PATIENT
  Age: 38 Year
  Sex: Female

DRUGS (5)
  1. VALIUM [Suspect]
     Indication: SEDATION
     Route: 030
     Dates: start: 19890426, end: 19890426
  2. NARCOZEP [Suspect]
     Indication: SEDATION
     Route: 042
     Dates: start: 19890426, end: 19890430
  3. FENTANYL CITRATE [Concomitant]
     Indication: SEDATION
     Route: 042
     Dates: start: 19890426, end: 19890430
  4. PENTOTHAL [Concomitant]
     Indication: SEDATION
     Route: 042
     Dates: start: 19890426, end: 19890430
  5. TIAPRIDAL [Concomitant]
     Indication: SEDATION
     Route: 042
     Dates: start: 19890426, end: 19890426

REACTIONS (3)
  - COMA [None]
  - CONVULSION [None]
  - DEATH [None]
